FAERS Safety Report 4383199-5 (Version None)
Quarter: 2004Q2

REPORT INFORMATION
  Report Type: 
  Country: None (occurrence: None)
  Receive Date: 20040618
  Receipt Date: 20040607
  Transmission Date: 20050107
  Serious: Yes (Death, Hospitalization, Other)
  Sender: FDA-Public Use
  Company Number: US-JNJFOC-20031204573

PATIENT
  Age: 34 Year
  Sex: Female
  Weight: 52.6173 kg

DRUGS (37)
  1. DURAGESIC [Suspect]
     Indication: PAIN
     Dosage: 25 UG, 1 IN 72 HOUR, TRANSDERMAL
     Route: 062
     Dates: start: 20010910, end: 20010930
  2. EFFEXOR XR [Suspect]
     Indication: DEPRESSION
     Dosage: SEE IMAGE ORAL
     Route: 048
     Dates: start: 20010910, end: 20010913
  3. EFFEXOR XR [Suspect]
     Indication: DEPRESSION
     Dosage: SEE IMAGE ORAL
     Route: 048
     Dates: start: 20010919
  4. EFFEXOR XR [Suspect]
     Indication: DEPRESSION
     Dosage: SEE IMAGE ORAL
     Route: 048
     Dates: start: 20010920
  5. EFFEXOR XR [Suspect]
     Indication: DEPRESSION
     Dosage: SEE IMAGE ORAL
     Route: 048
     Dates: start: 20010923
  6. EFFEXOR XR [Suspect]
     Indication: DEPRESSION
     Dosage: SEE IMAGE ORAL
     Route: 048
     Dates: start: 20010925
  7. XANAX [Suspect]
     Indication: ANXIETY
     Dosage: SEE IMAGE
     Dates: start: 20010901
  8. XANAX [Suspect]
     Indication: PANIC ATTACK
     Dosage: SEE IMAGE
     Dates: start: 20010901
  9. XANAX [Suspect]
     Indication: ANXIETY
     Dosage: SEE IMAGE
     Dates: start: 20010918
  10. XANAX [Suspect]
     Indication: PANIC ATTACK
     Dosage: SEE IMAGE
     Dates: start: 20010918
  11. XANAX [Suspect]
     Indication: ANXIETY
     Dosage: SEE IMAGE
     Dates: start: 20010919
  12. XANAX [Suspect]
     Indication: PANIC ATTACK
     Dosage: SEE IMAGE
     Dates: start: 20010919
  13. XANAX [Suspect]
     Indication: ANXIETY
     Dosage: SEE IMAGE
     Dates: start: 20010921
  14. XANAX [Suspect]
     Indication: PANIC ATTACK
     Dosage: SEE IMAGE
     Dates: start: 20010921
  15. XANAX [Suspect]
     Indication: ANXIETY
     Dosage: SEE IMAGE
     Dates: start: 20010924
  16. XANAX [Suspect]
     Indication: PANIC ATTACK
     Dosage: SEE IMAGE
     Dates: start: 20010924
  17. AMBIEN [Suspect]
     Indication: INSOMNIA
     Dosage: AS NEEDED
     Dates: start: 20010901, end: 20010924
  18. PHENERGAN [Suspect]
     Indication: NAUSEA
     Dosage: 25 MG
     Dates: start: 20010913
  19. HUMULIN 70/30 (HUMAN MIXTARD) [Concomitant]
  20. NEURONTIN [Concomitant]
  21. ZYPREXA [Concomitant]
  22. LIPITOR [Concomitant]
  23. PREMARIN [Concomitant]
  24. DOXEPIN HCL [Concomitant]
  25. CIPRO (CIPROFLOXACIN HYDROCHLORIDE) TABLETS [Concomitant]
  26. PROZAC (FLUOXETINE HYDROCHLORIDE) TABLETS [Concomitant]
  27. RITALIN [Concomitant]
  28. CLARITAN (NAFTIDROFURYL) [Concomitant]
  29. SYNTHROID [Concomitant]
  30. REMERON [Concomitant]
  31. REGLAN [Concomitant]
  32. BACTRIM DS [Concomitant]
  33. DIFLUCAN [Concomitant]
  34. WELLBUTRIN SR [Concomitant]
  35. CIPRO OPHTHALMIC DROPS (CIPROFLOXACIN HYDROCHLORIDE) [Concomitant]
  36. MICRO K (POTASSIUM CHLORIDE) [Concomitant]
  37. HUMALOG 75/25 (HUMALOG MIX 25) [Concomitant]

REACTIONS (31)
  - ADVERSE EVENT [None]
  - ANXIETY [None]
  - APATHY [None]
  - ASPIRATION [None]
  - BACTERIA URINE [None]
  - BLOOD GLUCOSE FLUCTUATION [None]
  - BLOOD THYROID STIMULATING HORMONE INCREASED [None]
  - CANDIDURIA [None]
  - CARDIAC ARREST [None]
  - COMA [None]
  - CONDITION AGGRAVATED [None]
  - CONVULSION [None]
  - CORNEAL ABRASION [None]
  - DECREASED INTEREST [None]
  - DEPRESSION [None]
  - DIABETIC EYE DISEASE [None]
  - DISEASE RECURRENCE [None]
  - DISTURBANCE IN ATTENTION [None]
  - DRUG INEFFECTIVE [None]
  - EYE PAIN [None]
  - FATIGUE [None]
  - HALLUCINATION, AUDITORY [None]
  - HYPERSENSITIVITY [None]
  - HYPOGLYCAEMIA [None]
  - HYPOTHYROIDISM [None]
  - LETHARGY [None]
  - MARKEDLY REDUCED DIETARY INTAKE [None]
  - MULTIPLE DRUG OVERDOSE [None]
  - NAUSEA [None]
  - PANIC ATTACK [None]
  - RESPIRATORY ARREST [None]
